FAERS Safety Report 4539463-X (Version None)
Quarter: 2004Q4

REPORT INFORMATION
  Report Type: 
  Country: None (occurrence: None)
  Receive Date: 20041222
  Receipt Date: 20041207
  Transmission Date: 20050328
  Serious: No
  Sender: FDA-Public Use
  Company Number: 2004SE05631

PATIENT
  Age: 16 Year
  Sex: Female
  Weight: 75.8 kg

DRUGS (2)
  1. OXIS [Suspect]
  2. SPIROCORT [Suspect]
     Dosage: 400 UG DAILY IH
     Route: 055
     Dates: start: 20041001, end: 20041001

REACTIONS (3)
  - ASTHMA [None]
  - PULMONARY FUNCTION CHALLENGE TEST ABNORMAL [None]
  - REACTION TO DRUG EXCIPIENT [None]
